FAERS Safety Report 9270429 (Version 1)
Quarter: 2013Q2

REPORT INFORMATION
  Report Type: Report from Study
  Country: ES (occurrence: ES)
  Receive Date: 20130503
  Receipt Date: 20130503
  Transmission Date: 20140414
  Serious: Yes (Other)
  Sender: FDA-Public Use
  Company Number: ES-BAYER-2013-046413

PATIENT
  Age: 8 Year
  Sex: 0

DRUGS (3)
  1. IBUPROFEN [Suspect]
     Indication: DRUG HYPERSENSITIVITY
     Route: 048
  2. IBUPROFEN [Suspect]
     Indication: DRUG HYPERSENSITIVITY
     Dosage: 10 MG/KG/DOSE 100 % TCD
  3. ACETYLSALICYLIC ACID [Suspect]
     Indication: DRUG HYPERSENSITIVITY
     Dosage: 20 MG/KG/DOSE 50% TCD
     Route: 048

REACTIONS (2)
  - Angioedema [None]
  - Angioedema [None]
